FAERS Safety Report 10779411 (Version 1)
Quarter: 2015Q1

REPORT INFORMATION
  Report Type: Report from Study
  Country: CN (occurrence: CN)
  Receive Date: 20150210
  Receipt Date: 20150210
  Transmission Date: 20150721
  Serious: Yes (Hospitalization)
  Sender: FDA-Public Use
  Company Number: CN-UCBSA-2014021033

PATIENT
  Age: 16 Year
  Sex: Male
  Weight: 55 kg

DRUGS (1)
  1. *CARBAMAZEPINE [Suspect]
     Active Substance: CARBAMAZEPINE
     Indication: EPILEPSY
     Dosage: 200 MG, ONCE DAILY (QD)
     Route: 048
     Dates: start: 20141119, end: 20141209

REACTIONS (2)
  - Rash [Recovered/Resolved]
  - Lung infection [Recovered/Resolved]

NARRATIVE: CASE EVENT DATE: 20141201
